FAERS Safety Report 14385261 (Version 2)
Quarter: 2019Q2

REPORT INFORMATION
  Report Type: Spontaneous
  Country: US (occurrence: US)
  Receive Date: 20180115
  Receipt Date: 20190613
  Transmission Date: 20190711
  Serious: Yes (Other)
  Sender: FDA-Public Use
  Company Number: US-SA-2016SA223171

PATIENT
  Age: 64 Year
  Sex: Female
  Weight: 90.71 kg

DRUGS (14)
  1. CYTOXAN [Concomitant]
     Active Substance: CYCLOPHOSPHAMIDE
     Dosage: UNK UNK,QCY
     Route: 042
  2. TAXOTERE [Suspect]
     Active Substance: DOCETAXEL
     Indication: BREAST CANCER METASTATIC
     Dosage: 77 MG,QW
     Route: 042
     Dates: start: 200511, end: 200511
  3. METFORMIN [Concomitant]
     Active Substance: METFORMIN HYDROCHLORIDE
     Dosage: UNK UNK,UNK
     Route: 065
     Dates: start: 2000
  4. LORATADINE. [Concomitant]
     Active Substance: LORATADINE
  5. PREMPRO [Concomitant]
     Active Substance: ESTROGENS, CONJUGATED\MEDROXYPROGESTERONE ACETATE
  6. AVANDIA [Concomitant]
     Active Substance: ROSIGLITAZONE MALEATE
     Dosage: UNK UNK,UNK
     Route: 065
     Dates: start: 1995, end: 2010
  7. TAXOTERE [Suspect]
     Active Substance: DOCETAXEL
     Dosage: 77 MG,QW
     Route: 042
     Dates: start: 200512, end: 200512
  8. LISINOPRIL. [Concomitant]
     Active Substance: LISINOPRIL
     Dosage: UNK UNK,UNK
     Route: 065
     Dates: start: 2000
  9. CYTOXAN [Concomitant]
     Active Substance: CYCLOPHOSPHAMIDE
     Dosage: UNK UNK,QCY
     Route: 042
  10. NEOSAR [Concomitant]
     Active Substance: CYCLOPHOSPHAMIDE
     Dosage: UNK UNK,UNK
     Route: 065
  11. ELLENCE [Concomitant]
     Active Substance: EPIRUBICIN HYDROCHLORIDE
     Dosage: UNK UNK,QCY
     Route: 042
  12. ELLENCE [Concomitant]
     Active Substance: EPIRUBICIN HYDROCHLORIDE
     Dosage: UNK UNK,QCY
     Route: 042
  13. GLUCOTROL [Concomitant]
     Active Substance: GLIPIZIDE
     Dosage: UNK UNK,UNK
     Route: 065
     Dates: start: 2005, end: 2009
  14. COLCHICINE. [Concomitant]
     Active Substance: COLCHICINE
     Dosage: UNK UNK,UNK
     Route: 065
     Dates: start: 2005, end: 2014

REACTIONS (4)
  - Emotional distress [Unknown]
  - Alopecia [Recovering/Resolving]
  - Impaired quality of life [Unknown]
  - Anxiety [Unknown]

NARRATIVE: CASE EVENT DATE: 200608
